FAERS Safety Report 24841067 (Version 1)
Quarter: 2025Q1

REPORT INFORMATION
  Report Type: Spontaneous
  Country: US (occurrence: None)
  Receive Date: 20250113
  Receipt Date: 20250113
  Transmission Date: 20250408
  Serious: Yes (Hospitalization, Other)
  Sender: FDA-CTU
  Company Number: None

PATIENT
  Age: 54 Year
  Sex: Male
  Weight: 82.2 kg

DRUGS (2)
  1. LYBALVI [Suspect]
     Active Substance: OLANZAPINE\SAMIDORPHAN L-MALATE
     Indication: Depression
     Route: 048
     Dates: start: 20241209, end: 20241209
  2. BUPRENORPHINE [Concomitant]
     Active Substance: BUPRENORPHINE

REACTIONS (2)
  - Withdrawal syndrome [None]
  - Depression [None]

NARRATIVE: CASE EVENT DATE: 20241209
